FAERS Safety Report 7141310-7 (Version None)
Quarter: 2010Q4

REPORT INFORMATION
  Report Type: 
  Country: None (occurrence: None)
  Receive Date: 20101122
  Receipt Date: 20101108
  Transmission Date: 20110411
  Serious: Yes (Hospitalization)
  Sender: FDA-Public Use
  Company Number: DSA_44285_2010

PATIENT
  Age: 68 Year
  Sex: Male

DRUGS (14)
  1. ENALAPRIL MALEATE [Suspect]
     Indication: ESSENTIAL HYPERTENSION
     Dosage: (10 MG QD ORAL)
     Route: 048
  2. METOPROLOL SUCCINATE [Suspect]
     Indication: ESSENTIAL HYPERTENSION
     Dosage: (200 MG DAILY ORAL), (DF)
     Route: 048
  3. ALFUZOSIN HYDROCHLORIDE [Suspect]
     Indication: PRODUCT USED FOR UNKNOWN INDICATION
     Dosage: (10 MG DAILY ORAL)
     Route: 048
  4. FELODIPINE [Suspect]
     Indication: ESSENTIAL HYPERTENSION
     Dosage: (10 MG QD ORAL)
     Route: 048
     Dates: end: 20100316
  5. VESICARE [Suspect]
     Indication: PRODUCT USED FOR UNKNOWN INDICATION
     Dosage: (5 MG DAILY ORAL)
     Route: 048
  6. PAMOL [Concomitant]
  7. TROMBYL [Concomitant]
  8. MATRIFEN [Concomitant]
  9. GABAPENTIN [Concomitant]
  10. LACTULOSE [Concomitant]
  11. NITROLINGUAL [Concomitant]
  12. OMEPRAZOLE [Concomitant]
  13. OXASCAND [Concomitant]
  14. ZOPICLONE [Concomitant]

REACTIONS (3)
  - BLOOD POTASSIUM DECREASED [None]
  - ELECTROCARDIOGRAM QT PROLONGED [None]
  - HYPOTENSION [None]
